FAERS Safety Report 4626736-5 (Version None)
Quarter: 2005Q2

REPORT INFORMATION
  Report Type: 
  Country: None (occurrence: None)
  Receive Date: 20050405
  Receipt Date: 20050329
  Transmission Date: 20051028
  Serious: Yes (Other)
  Sender: FDA-Public Use
  Company Number: 200510828EU

PATIENT
  Age: 66 Year
  Sex: Female

DRUGS (19)
  1. TAVANIC [Suspect]
     Indication: DIVERTICULITIS
     Route: 048
     Dates: start: 20040414, end: 20040415
  2. FLAGYL [Suspect]
     Indication: DIVERTICULITIS
     Route: 048
     Dates: start: 20040414, end: 20040420
  3. ZYLORIC [Concomitant]
  4. ACETAMINOPHEN [Concomitant]
  5. IMPUGAN [Concomitant]
  6. LANSOPRAZOLE [Concomitant]
  7. TIOTROPIUM BROMIDE ^SPIRIVA^ [Concomitant]
  8. PULMICORT [Concomitant]
     Route: 055
  9. SERETIDE DISKUS [Concomitant]
  10. THEO-DUR [Concomitant]
  11. CITALOPRAM HYDROBROMIDE [Concomitant]
  12. BRICANYL DEPOT [Concomitant]
  13. MONOKET [Concomitant]
  14. VENTOLIN [Concomitant]
  15. FLUNITRAZEPAM NM [Concomitant]
  16. CARDIZEM [Concomitant]
  17. ASPIRIN [Concomitant]
  18. SPIRONOLACTONE [Concomitant]
  19. NOBLIGAN [Concomitant]

REACTIONS (1)
  - TREMOR [None]
